FAERS Safety Report 5268274-5 (Version None)
Quarter: 2007Q1

REPORT INFORMATION
  Report Type: 
  Country: None (occurrence: None)
  Receive Date: 20070314
  Receipt Date: 20070314
  Transmission Date: 20070707
  Serious: Yes (Death)
  Sender: FDA-Public Use
  Company Number: None

PATIENT
  Age: 80 Year
  Sex: Female
  Weight: 58 kg

DRUGS (3)
  1. GEODON [Suspect]
     Indication: AGITATION
     Dosage: GEODON 80MG BID PO
     Route: 048
     Dates: start: 20061101, end: 20070119
  2. GEODON [Suspect]
     Indication: DEMENTIA
     Dosage: GEODON 80MG BID PO
     Route: 048
     Dates: start: 20061101, end: 20070119
  3. GEODON [Suspect]
     Dosage: GEODON 10MG 1/19 0850 + 1835 IM
     Route: 030

REACTIONS (10)
  - AGGRESSION [None]
  - AGITATION [None]
  - ANOXIC ENCEPHALOPATHY [None]
  - ANXIETY [None]
  - BLOOD PRESSURE SYSTOLIC INCREASED [None]
  - CARDIO-RESPIRATORY ARREST [None]
  - ELECTROCARDIOGRAM QT CORRECTED INTERVAL PROLONGED [None]
  - ELECTROCARDIOGRAM QT PROLONGED [None]
  - MYOCLONUS [None]
  - VENTRICULAR TACHYCARDIA [None]
